FAERS Safety Report 24090802 (Version 1)
Quarter: 2024Q3

REPORT INFORMATION
  Report Type: Spontaneous
  Country: GB (occurrence: GB)
  Receive Date: 20240715
  Receipt Date: 20240715
  Transmission Date: 20241016
  Serious: Yes (Life-Threatening, Other)
  Sender: TEVA
  Company Number: None

PATIENT
  Sex: Male

DRUGS (1)
  1. DOXYCYCLINE [Suspect]
     Active Substance: DOXYCYCLINE\DOXYCYCLINE HYCLATE
     Indication: Adverse drug reaction
     Dosage: 100MG A DAY FOR 5 DAYS
     Route: 065
     Dates: start: 20240222, end: 20240226

REACTIONS (4)
  - Suicidal ideation [Recovered/Resolved with Sequelae]
  - Akathisia [Recovered/Resolved]
  - Panic attack [Recovered/Resolved]
  - Tachyphrenia [Recovering/Resolving]

NARRATIVE: CASE EVENT DATE: 20240303
